FAERS Safety Report 24245964 (Version 1)
Quarter: 2024Q3

REPORT INFORMATION
  Report Type: Spontaneous
  Country: US (occurrence: US)
  Receive Date: 20240824
  Receipt Date: 20240824
  Transmission Date: 20241016
  Serious: Yes (Other)
  Sender: AMGEN
  Company Number: US-AMGEN-USASP2024162275

PATIENT

DRUGS (4)
  1. TALIMOGENE LAHERPAREPVEC [Suspect]
     Active Substance: TALIMOGENE LAHERPAREPVEC
     Indication: Leiomyosarcoma
     Dosage: 1 X10^6 PFU/ML, Q2WK
     Route: 036
  2. TALIMOGENE LAHERPAREPVEC [Suspect]
     Active Substance: TALIMOGENE LAHERPAREPVEC
     Indication: Off label use
     Dosage: 1 X10^8 PFU/ML, Q2WK (THREE WEEKS LATER)
     Route: 036
  3. TRABECTEDIN [Concomitant]
     Active Substance: TRABECTEDIN
     Indication: Leiomyosarcoma
     Dosage: 1.2 MILLIGRAM/SQ. METER, Q3WK (EVERY THREE WEEKS)
  4. NIVOLUMAB [Concomitant]
     Active Substance: NIVOLUMAB
     Indication: Leiomyosarcoma
     Dosage: 3 MILLIGRAM/KILOGRAM, Q2WK (EVERY TWO WEEKS)

REACTIONS (10)
  - Thrombocytopenia [Unknown]
  - Neutropenia [Unknown]
  - Alanine aminotransferase increased [Unknown]
  - Gamma-glutamyltransferase increased [Unknown]
  - Ejection fraction decreased [Unknown]
  - Hyponatraemia [Unknown]
  - Anaemia [Unknown]
  - Dehydration [Unknown]
  - Therapy partial responder [Unknown]
  - Off label use [Unknown]
